FAERS Safety Report 5632883-1 (Version None)
Quarter: 2008Q1

REPORT INFORMATION
  Report Type: 
  Country: None (occurrence: None)
  Receive Date: 20080221
  Receipt Date: 20080221
  Transmission Date: 20080703
  Serious: Yes (Life-Threatening, Disabling, Other)
  Sender: FDA-Public Use
  Company Number: None

PATIENT
  Age: 67 Year
  Sex: Female
  Weight: 95.2554 kg

DRUGS (1)
  1. HEPARIN [Suspect]
     Indication: RENAL FAILURE
     Dosage: -3- TIMES A WEEK

REACTIONS (6)
  - CHEST PAIN [None]
  - DYSPNOEA [None]
  - FLUID RETENTION [None]
  - HEART RATE INCREASED [None]
  - NAUSEA [None]
  - PROCEDURAL HYPOTENSION [None]
